FAERS Safety Report 10618509 (Version 1)
Quarter: 2014Q4

REPORT INFORMATION
  Report Type: Spontaneous
  Country: US (occurrence: None)
  Receive Date: 20141125
  Receipt Date: 20141125
  Transmission Date: 20150529
  Serious: Yes (Death)
  Sender: FDA-Public Use
  Company Number: INS201411-00268

PATIENT
  Age: 38 Year
  Sex: Male

DRUGS (3)
  1. MORPHINE [Concomitant]
     Active Substance: MORPHINE
  2. OXYCODONE [Concomitant]
     Active Substance: OXYCODONE
  3. SUBSYS [Suspect]
     Active Substance: FENTANYL
     Indication: PAIN
     Dosage: ONE SPRAY
     Dates: start: 201311

REACTIONS (2)
  - Death [None]
  - Off label use [None]

NARRATIVE: CASE EVENT DATE: 20141105
